FAERS Safety Report 9412158 (Version 1)
Quarter: 2013Q3

REPORT INFORMATION
  Report Type: Spontaneous
  Country: US (occurrence: None)
  Receive Date: 20130719
  Receipt Date: 20130719
  Transmission Date: 20140515
  Serious: No
  Sender: FDA-Public Use
  Company Number: None

PATIENT
  Age: 51 Year
  Sex: Male

DRUGS (3)
  1. LIDOCAINE WITH EPINEPHRINE [Suspect]
     Indication: LYMPHADENECTOMY
     Route: 023
     Dates: start: 20130703, end: 20130703
  2. MUPIROCIN [Concomitant]
  3. EPINEPHRINE [Concomitant]

REACTIONS (1)
  - Drug ineffective [None]
